FAERS Safety Report 8067918-2 (Version None)
Quarter: 2012Q1

REPORT INFORMATION
  Report Type: 
  Country: None (occurrence: None)
  Receive Date: 20120124
  Receipt Date: 20110913
  Transmission Date: 20120608
  Serious: No
  Sender: FDA-Public Use
  Company Number: US-AMGEN-USASP2011037859

PATIENT
  Age: 68 Year
  Sex: Female
  Weight: 54 kg

DRUGS (4)
  1. VITAMIN TAB [Concomitant]
  2. PROLIA [Suspect]
     Indication: OSTEOPOROSIS POSTMENOPAUSAL
     Dosage: 60 MG, Q6MO
     Route: 058
     Dates: start: 20110315
  3. MINERALS NOS [Concomitant]
  4. NEXIUM [Concomitant]
     Indication: ABDOMINAL DISTENSION

REACTIONS (10)
  - PAIN [None]
  - PAIN IN EXTREMITY [None]
  - PRURITUS [None]
  - ABDOMINAL DISTENSION [None]
  - MEDIAL TIBIAL STRESS SYNDROME [None]
  - ADVERSE DRUG REACTION [None]
  - RASH GENERALISED [None]
  - SLUGGISHNESS [None]
  - OROPHARYNGEAL PAIN [None]
  - FATIGUE [None]
